FAERS Safety Report 20736329 (Version 8)
Quarter: 2022Q3

REPORT INFORMATION
  Report Type: Report from Study
  Country: CN (occurrence: None)
  Receive Date: 20220421
  Receipt Date: 20220805
  Transmission Date: 20221027
  Serious: Yes (Hospitalization)
  Sender: FDA-Public Use
  Company Number: CN-ROCHE-3078372

PATIENT
  Age: 44 Year
  Sex: Male
  Weight: 67 kg

DRUGS (4)
  1. ATEZOLIZUMAB [Suspect]
     Active Substance: ATEZOLIZUMAB
     Indication: Oesophageal squamous cell carcinoma metastatic
     Dosage: ON 11/MAR/2022, HE RECEIVED HIS MOST RECENT DOSE OF 1200 MG ATEZOLIZUMAB PRIOR TO SAE.
     Route: 041
     Dates: start: 20210429
  2. TIRAGOLUMAB [Suspect]
     Active Substance: TIRAGOLUMAB
     Indication: Oesophageal squamous cell carcinoma metastatic
     Dosage: ON 11/MAR/2022, HE RECEIVED HIS MOST RECENT DOSE OF 600 MG TIRAGOLUMAB PRIOR TO SAE.
     Route: 042
     Dates: start: 20210429
  3. PACLITAXEL [Suspect]
     Active Substance: PACLITAXEL
     Indication: Oesophageal squamous cell carcinoma metastatic
     Dosage: ON 12/AUG/2021, HE RECEIVED HIS MOST RECENT DOSE OF PACLITAXEL PRIOR TO SAE.
     Route: 042
     Dates: start: 20210429
  4. CISPLATIN [Suspect]
     Active Substance: CISPLATIN
     Indication: Oesophageal squamous cell carcinoma metastatic
     Dosage: ON 12/AUG/2021, HE RECEIVED HIS MOST RECENT DOSE OF CISPLATIN PRIOR TO SAE.
     Route: 042
     Dates: start: 20210429

REACTIONS (1)
  - Anaemia [Not Recovered/Not Resolved]

NARRATIVE: CASE EVENT DATE: 20220105
